FAERS Safety Report 10027161 (Version 1)
Quarter: 2014Q1

REPORT INFORMATION
  Report Type: Spontaneous
  Country: US (occurrence: US)
  Receive Date: 20140321
  Receipt Date: 20140321
  Transmission Date: 20141002
  Serious: No
  Sender: FDA-Public Use
  Company Number: US-MYLANLABS-2013S1025051

PATIENT
  Sex: Female
  Weight: 52.16 kg

DRUGS (7)
  1. ESTRADIOL TRANSDERMAL SYSTEM, USP [Suspect]
     Indication: HORMONE REPLACEMENT THERAPY
     Dosage: CHANGED QW
     Route: 062
     Dates: start: 2008
  2. MULTI VIT [Concomitant]
  3. VITAMIN C [Concomitant]
  4. CALCIUM [Concomitant]
  5. ASA [Concomitant]
  6. XANAX [Concomitant]
     Indication: ANXIETY
  7. HYDROCODONE [Concomitant]
     Indication: NECK PAIN

REACTIONS (1)
  - Application site pruritus [Not Recovered/Not Resolved]
